FAERS Safety Report 8545395-2 (Version None)
Quarter: 2012Q3

REPORT INFORMATION
  Report Type: 
  Country: None (occurrence: None)
  Receive Date: 20120727
  Receipt Date: 20120104
  Transmission Date: 20120928
  Serious: No
  Sender: FDA-Public Use
  Company Number: US-ASTRAZENECA-2011SE66227

PATIENT
  Age: 82 Year
  Sex: Female
  Weight: 58.1 kg

DRUGS (8)
  1. SEROQUEL [Suspect]
     Route: 048
  2. LORAZEPAM [Concomitant]
  3. AMLODIPINE [Concomitant]
  4. SEROQUEL [Suspect]
     Indication: DEPRESSION
     Route: 048
  5. SEROQUEL [Suspect]
     Route: 048
  6. MAGNESIUM SULFATE [Concomitant]
  7. NORVAN [Concomitant]
  8. IBUPROFEN [Concomitant]

REACTIONS (3)
  - MALAISE [None]
  - FALL [None]
  - LIMB INJURY [None]
